FAERS Safety Report 8382042-7 (Version None)
Quarter: 2012Q2

REPORT INFORMATION
  Report Type: 
  Country: None (occurrence: None)
  Receive Date: 20120523
  Receipt Date: 20120523
  Transmission Date: 20120825
  Serious: Yes (Hospitalization)
  Sender: FDA-Public Use
  Company Number: None

PATIENT
  Age: 41 Year
  Sex: Female
  Weight: 113.3993 kg

DRUGS (2)
  1. METOCLOPRAMIDE [Suspect]
     Indication: NAUSEA
     Dosage: 10MG ONCE IV BOLUS
     Route: 040
     Dates: start: 20120518, end: 20120518
  2. METOCLOPRAMIDE [Suspect]
     Indication: VOMITING
     Dosage: 10MG ONCE IV BOLUS
     Route: 040
     Dates: start: 20120518, end: 20120518

REACTIONS (2)
  - DYSKINESIA [None]
  - RESTLESSNESS [None]
